FAERS Safety Report 5694805-7 (Version None)
Quarter: 2008Q2

REPORT INFORMATION
  Report Type: 
  Country: None (occurrence: None)
  Receive Date: 20080404
  Receipt Date: 20080401
  Transmission Date: 20081010
  Serious: Yes (Other)
  Sender: FDA-Public Use
  Company Number: US-MERCK-0804USA00408

PATIENT
  Age: 12 Year
  Sex: Male

DRUGS (3)
  1. SINGULAIR [Suspect]
     Indication: ASTHMA
     Route: 048
     Dates: start: 20050101, end: 20070901
  2. ALBUTEROL [Concomitant]
     Route: 065
  3. AZMACORT [Concomitant]
     Route: 065

REACTIONS (5)
  - ABNORMAL BEHAVIOUR [None]
  - INAPPROPRIATE SCHEDULE OF DRUG ADMINISTRATION [None]
  - MOOD SWINGS [None]
  - OVERDOSE [None]
  - SUICIDAL IDEATION [None]
